FAERS Safety Report 16723740 (Version 3)
Quarter: 2020Q1

REPORT INFORMATION
  Report Type: Spontaneous
  Country: CA (occurrence: CA)
  Receive Date: 20190821
  Receipt Date: 20200124
  Transmission Date: 20200409
  Serious: Yes (Other)
  Sender: FDA-Public Use
  Company Number: CA-AUROBINDO-AUR-APL-2019-054482

PATIENT
  Age: 61 Year
  Sex: Male
  Weight: 175 kg

DRUGS (12)
  1. CIPROFLOXACIN. [Suspect]
     Active Substance: CIPROFLOXACIN
     Dosage: 500 MILLIGRAM, 3 TIMES A DAY
     Route: 048
  2. ALLOPURINOL. [Concomitant]
     Active Substance: ALLOPURINOL
     Indication: PRODUCT USED FOR UNKNOWN INDICATION
     Dosage: 300 MILLIGRAM, DAILY
     Route: 048
  3. LATANOPROST. [Concomitant]
     Active Substance: LATANOPROST
     Indication: PRODUCT USED FOR UNKNOWN INDICATION
     Dosage: UNK, DAILY
     Route: 065
  4. CIPROFLOXACIN. [Suspect]
     Active Substance: CIPROFLOXACIN
     Indication: INFECTION
     Dosage: 500 MILLIGRAM, TWO TIMES A DAY
     Route: 048
  5. METRONIDAZOLE. [Suspect]
     Active Substance: METRONIDAZOLE
     Indication: INFECTION
     Dosage: 500 MILLIGRAM, 3 TIMES A DAY
     Route: 048
  6. NORITATE [Suspect]
     Active Substance: METRONIDAZOLE
     Indication: INFECTION
     Dosage: 500 MILLIGRAM, TWO TIMES A DAY
     Route: 065
  7. METRONIDAZOLE. [Suspect]
     Active Substance: METRONIDAZOLE
     Indication: INFECTION
     Dosage: 500 MILLIGRAM, 3 TIMES A DAY
     Route: 048
  8. GABAPENTIN. [Concomitant]
     Active Substance: GABAPENTIN
     Indication: PRODUCT USED FOR UNKNOWN INDICATION
     Dosage: 100 MILLIGRAM, TWO TIMES A DAY
     Route: 048
  9. CIPROFLOXACIN FILM-COATED TABLETS [Suspect]
     Active Substance: CIPROFLOXACIN
     Indication: INFECTION
     Dosage: 500 MILLIGRAM, 3 TIMES A DAY
     Route: 065
  10. IRBESARTAN. [Concomitant]
     Active Substance: IRBESARTAN
     Indication: PRODUCT USED FOR UNKNOWN INDICATION
     Dosage: 150 MILLIGRAM, DAILY
     Route: 065
  11. METFORMIN [Concomitant]
     Active Substance: METFORMIN HYDROCHLORIDE
     Indication: PRODUCT USED FOR UNKNOWN INDICATION
     Dosage: 500 MILLIGRAM, TWO TIMES A DAY
     Route: 048
  12. TAMSULOSIN [Concomitant]
     Active Substance: TAMSULOSIN
     Indication: PRODUCT USED FOR UNKNOWN INDICATION
     Dosage: 0.4 MILLIGRAM, DAILY
     Route: 065

REACTIONS (7)
  - Headache [Recovered/Resolved]
  - Blister [Recovered/Resolved]
  - Rash morbilliform [Recovered/Resolved]
  - Dermatitis exfoliative [Recovered/Resolved]
  - Malaise [Recovered/Resolved]
  - Rash pruritic [Recovered/Resolved]
  - Pruritus [Recovered/Resolved]
